FAERS Safety Report 10125842 (Version 1)
Quarter: 2014Q2

REPORT INFORMATION
  Report Type: Other
  Country: None (occurrence: US)
  Receive Date: 20140427
  Receipt Date: 20140427
  Transmission Date: 20141212
  Serious: Yes (Other)
  Sender: FDA-Public Use
  Company Number: US-GSKPPD-2014GSK028649

PATIENT
  Sex: 0

DRUGS (1)
  1. AVANDIA [Suspect]
     Indication: DIABETES MELLITUS
     Route: 048

REACTIONS (10)
  - Heart rate irregular [None]
  - Atrioventricular block first degree [None]
  - Cardiomyopathy [None]
  - Cardiac disorder [None]
  - Angina pectoris [None]
  - Tachycardia [None]
  - Myocardial infarction [None]
  - Myocardial infarction [None]
  - Coronary artery disease [None]
  - Myocardial ischaemia [None]
